FAERS Safety Report 4369566-4 (Version None)
Quarter: 2004Q2

REPORT INFORMATION
  Report Type: 
  Country: None (occurrence: None)
  Receive Date: 20040603
  Receipt Date: 20040511
  Transmission Date: 20050107
  Serious: Yes (Other)
  Sender: FDA-Public Use
  Company Number: PHEH2004US05216

PATIENT
  Age: 72 Year
  Sex: Male

DRUGS (17)
  1. ZOMETA [Suspect]
     Indication: MULTIPLE MYELOMA
     Dosage: 4 MG EVERY MONTH
     Route: 042
     Dates: start: 20011210, end: 20020625
  2. ALTACE [Concomitant]
     Dosage: 5 MG, QD
  3. AMIODARONE HCL [Concomitant]
     Dosage: 200 MG, QD
  4. ATENOLOL [Concomitant]
     Dosage: 25 MG, QD
  5. ISORBID [Concomitant]
     Dosage: UNK, BID
  6. ATIVAN [Concomitant]
     Dosage: .5 MG 1.5 HOURS HS
     Dates: start: 20011015
  7. PRAVACHOL [Concomitant]
     Dosage: 20 MG, QD
  8. COUMADIN [Concomitant]
     Dosage: TUES/TH 4-6 MG/WEEK
  9. STOOL SOFTENER [Concomitant]
     Dosage: 3 DAILY
  10. COMPAZINE [Concomitant]
     Dosage: 10 MG, PRN
  11. MELPHALAN [Concomitant]
     Dosage: 18 MG DAY 1-4
     Dates: start: 20010621, end: 20011029
  12. MELPHALAN [Concomitant]
     Dosage: 16 MG FOR 4 DAYS
     Dates: start: 20011210, end: 20011214
  13. MELPHALAN [Concomitant]
     Dosage: 14 MG DAYS 1-4 INT.
     Dates: start: 20020129, end: 20030613
  14. PREDNISONE [Concomitant]
     Dosage: 80 MG DAY 1-4 MONTHLY
     Route: 048
     Dates: start: 20010621
  15. FEMARA [Concomitant]
  16. PLAVIX [Concomitant]
  17. AGGRENOX [Concomitant]

REACTIONS (19)
  - BONE DEBRIDEMENT [None]
  - BONE DISORDER [None]
  - BONE EROSION [None]
  - CONSTIPATION [None]
  - DYSPHAGIA [None]
  - INDURATION [None]
  - INFECTION [None]
  - LEUKOPLAKIA [None]
  - LIP BLISTER [None]
  - ORAL PAIN [None]
  - OSTEOMYELITIS [None]
  - OSTEONECROSIS [None]
  - PAIN [None]
  - PAIN IN JAW [None]
  - STOMATITIS [None]
  - SUBCUTANEOUS ABSCESS [None]
  - TOOTH ABSCESS [None]
  - TOOTH DISORDER [None]
  - WEIGHT DECREASED [None]
